FAERS Safety Report 16444669 (Version 2)
Quarter: 2019Q3

REPORT INFORMATION
  Report Type: Spontaneous
  Country: CN (occurrence: CN)
  Receive Date: 20190618
  Receipt Date: 20190802
  Transmission Date: 20191004
  Serious: Yes (Hospitalization)
  Sender: FDA-Public Use
  Company Number: CN-ELI_LILLY_AND_COMPANY-CN201906006635

PATIENT
  Age: 44 Year
  Sex: Female
  Weight: 53 kg

DRUGS (2)
  1. HUMULIN N [Suspect]
     Active Substance: INSULIN HUMAN
     Indication: DIABETES MELLITUS
     Dosage: 6 U, DAILY (NOON)
     Route: 058
     Dates: start: 2017
  2. HUMULIN N [Suspect]
     Active Substance: INSULIN HUMAN
     Dosage: 8 U, TID  (MORNING, NIGHT, BEFORE SLEEP)
     Route: 058
     Dates: start: 2017

REACTIONS (2)
  - Blood glucose abnormal [Unknown]
  - Blood glucose abnormal [Recovered/Resolved]
